FAERS Safety Report 9705003 (Version 1)
Quarter: 2013Q4

REPORT INFORMATION
  Report Type: Spontaneous
  Country: US (occurrence: US)
  Receive Date: 20131122
  Receipt Date: 20131122
  Transmission Date: 20140711
  Serious: No
  Sender: FDA-Public Use
  Company Number: US-ABBVIE-13P-163-1134027-00

PATIENT
  Age: 41 Year
  Sex: Female
  Weight: 59.02 kg

DRUGS (3)
  1. ANDROGEL 1.62% [Suspect]
     Indication: ACCIDENTAL EXPOSURE TO PRODUCT
     Dosage: UNKNOWN PUMPS
     Route: 061
  2. CALCIUM [Concomitant]
     Indication: MINERAL SUPPLEMENTATION
  3. MULTIVITAMIN [Concomitant]
     Indication: PRODUCT USED FOR UNKNOWN INDICATION

REACTIONS (3)
  - Alopecia [Not Recovered/Not Resolved]
  - Madarosis [Not Recovered/Not Resolved]
  - Accidental exposure to product [Not Recovered/Not Resolved]
